FAERS Safety Report 24649802 (Version 1)
Quarter: 2024Q4

REPORT INFORMATION
  Report Type: Report from Study
  Country: FR (occurrence: FR)
  Receive Date: 20241121
  Receipt Date: 20241121
  Transmission Date: 20250115
  Serious: Yes (Other)
  Sender: AUROBINDO
  Company Number: FR-AUROBINDO-AUR-APL-2022-043875

PATIENT
  Age: 69 Year
  Sex: Male

DRUGS (10)
  1. MIRTAZAPINE [Suspect]
     Active Substance: MIRTAZAPINE
     Indication: Major depression
     Dosage: 30 MILLIGRAM, ONCE A DAY
     Route: 065
  2. QUETIAPINE [Suspect]
     Active Substance: QUETIAPINE
     Indication: Major depression
     Dosage: 300 MILLIGRAM, ONCE A DAY
     Route: 065
  3. AGOMELATINE [Suspect]
     Active Substance: AGOMELATINE
     Indication: Major depression
     Dosage: 50 MILLIGRAM, ONCE A DAY
     Route: 065
  4. LITHIUM [Suspect]
     Active Substance: LITHIUM
     Indication: Major depression
     Dosage: 800 MILLIGRAM, ONCE A DAY
     Route: 065
  5. PROPRANOLOL [Concomitant]
     Active Substance: PROPRANOLOL HYDROCHLORIDE
     Indication: Major depression
     Dosage: UNK
     Route: 065
  6. TOPIRAMATE [Concomitant]
     Active Substance: TOPIRAMATE
     Indication: Major depression
     Dosage: UNK
     Route: 065
  7. PROPOFOL [Concomitant]
     Active Substance: PROPOFOL
     Indication: Anaesthesia
     Dosage: 50 MG
     Route: 065
  8. PROPOFOL [Concomitant]
     Active Substance: PROPOFOL
     Dosage: 30?90 MG; MEAN, 52 MG
     Route: 065
  9. SUCCINYLCHOLINE [Concomitant]
     Active Substance: SUCCINYLCHOLINE\SUCCINYLCHOLINE CHLORIDE
     Indication: Anaesthesia
     Dosage: 30 MG
     Route: 065
  10. SUCCINYLCHOLINE [Concomitant]
     Active Substance: SUCCINYLCHOLINE\SUCCINYLCHOLINE CHLORIDE
     Dosage: 30?40 MG; MEAN, 35 MG
     Route: 065

REACTIONS (1)
  - Drug ineffective [Unknown]
